FAERS Safety Report 12066744 (Version 1)
Quarter: 2016Q1

REPORT INFORMATION
  Report Type: Spontaneous
  Country: US (occurrence: None)
  Receive Date: 20160210
  Receipt Date: 20160210
  Transmission Date: 20160526
  Serious: Yes (Hospitalization)
  Sender: FDA-Public Use
  Company Number: None

PATIENT
  Age: 49 Year
  Sex: Male

DRUGS (4)
  1. VITAMIN D [Concomitant]
     Active Substance: CHOLECALCIFEROL
  2. TRIAMTERENE. [Suspect]
     Active Substance: TRIAMTERENE
     Indication: MENIERE^S DISEASE
     Dosage: 1 CAPSULE ONCE DAILY TAKEN BY MOUTH
     Route: 048
     Dates: start: 20160126, end: 20160128
  3. CENTRUM [Concomitant]
     Active Substance: VITAMINS
  4. ALIGN PROBIOTIC [Concomitant]

REACTIONS (3)
  - Liver disorder [None]
  - Thrombosis [None]
  - Pancreatitis [None]
